FAERS Safety Report 7698836-7 (Version None)
Quarter: 2011Q3

REPORT INFORMATION
  Report Type: 
  Country: None (occurrence: None)
  Receive Date: 20110819
  Receipt Date: 20110810
  Transmission Date: 20111222
  Serious: Yes (Death, Hospitalization, Other)
  Sender: FDA-Public Use
  Company Number: US-BRISTOL-MYERS SQUIBB COMPANY-15948672

PATIENT
  Age: 77 Year
  Sex: Male
  Weight: 54 kg

DRUGS (8)
  1. RYTHMOL [Concomitant]
  2. TERAZOSIN HCL [Concomitant]
  3. GLYBURIDE [Concomitant]
  4. VITAMIN D2 [Concomitant]
  5. NORVASC [Concomitant]
  6. YERVOY [Suspect]
     Indication: METASTATIC MALIGNANT MELANOMA
     Dosage: 197 MG GIVEN ON 12JUL11
     Route: 042
     Dates: start: 20110712
  7. LASIX [Concomitant]
  8. MORPHINE SULFATE [Concomitant]
     Dosage: MORPHINE SULFATE ER:15MG 2 TIMES A DAY

REACTIONS (7)
  - HEPATIC FAILURE [None]
  - DEEP VEIN THROMBOSIS [None]
  - RIB FRACTURE [None]
  - INFECTION [None]
  - VENTRICULAR TACHYCARDIA [None]
  - MULTI-ORGAN FAILURE [None]
  - RENAL FAILURE [None]
